FAERS Safety Report 25620736 (Version 1)
Quarter: 2025Q3

REPORT INFORMATION
  Report Type: Report from Study
  Country: US (occurrence: US)
  Receive Date: 20250730
  Receipt Date: 20250730
  Transmission Date: 20251021
  Serious: Yes (Hospitalization, Other)
  Sender: ALEXION PHARMACEUTICALS
  Company Number: US-ASTRAZENECA-202507USA024871US

PATIENT
  Sex: Female
  Weight: 57.143 kg

DRUGS (35)
  1. ULTOMIRIS [Suspect]
     Active Substance: RAVULIZUMAB-CWVZ
     Indication: Interstitial lung disease
     Dosage: 330 MILLIGRAM, Q8W
     Dates: start: 20240701
  2. EPINEPHRINE [Concomitant]
     Active Substance: EPINEPHRINE
     Route: 065
  3. SODIUM CHLORIDE [Concomitant]
     Active Substance: SODIUM CHLORIDE
     Route: 065
  4. METOPROLOL SUCCINATE [Concomitant]
     Active Substance: METOPROLOL SUCCINATE
     Route: 065
  5. LEVOCETIRIZINE DIHYDROCHLORIDE [Concomitant]
     Active Substance: LEVOCETIRIZINE DIHYDROCHLORIDE
     Route: 065
  6. ALBUTEROL SULFATE [Concomitant]
     Active Substance: ALBUTEROL SULFATE
     Route: 065
  7. IBUPROFEN [Concomitant]
     Active Substance: IBUPROFEN
     Route: 065
  8. NIFEDIPINE [Concomitant]
     Active Substance: NIFEDIPINE
     Route: 065
  9. VITAMIN D3 [Concomitant]
     Active Substance: CHOLECALCIFEROL
     Route: 065
  10. IMODIUM [Concomitant]
     Active Substance: LOPERAMIDE HYDROCHLORIDE
     Route: 065
  11. TAMSULOSIN HYDROCHLORIDE [Concomitant]
     Active Substance: TAMSULOSIN HYDROCHLORIDE
     Route: 065
  12. MYCOPHENOLATE MOFETIL [Concomitant]
     Active Substance: MYCOPHENOLATE MOFETIL
     Route: 065
  13. OFEV [Concomitant]
     Active Substance: NINTEDANIB
     Route: 065
  14. ATORVASTATIN CALCIUM [Concomitant]
     Active Substance: ATORVASTATIN CALCIUM
     Route: 065
  15. BUPROPION [Concomitant]
     Active Substance: BUPROPION
     Route: 065
  16. SILDENAFIL CITRATE [Concomitant]
     Active Substance: SILDENAFIL CITRATE
     Route: 065
  17. IRON CHEWS [Concomitant]
     Active Substance: IRON PENTACARBONYL
     Route: 065
  18. ESTRADIOL [Concomitant]
     Active Substance: ESTRADIOL
     Route: 065
  19. PROAIR HFA [Concomitant]
     Active Substance: ALBUTEROL SULFATE
     Route: 065
  20. BUDESONIDE [Concomitant]
     Active Substance: BUDESONIDE
     Route: 065
  21. FORMOTEROL FUMARATE [Concomitant]
     Active Substance: FORMOTEROL FUMARATE
     Route: 065
  22. VITAMINS [Concomitant]
     Active Substance: VITAMINS
     Route: 065
  23. DIPHENHYDRAMINE HYDROCHLORIDE [Concomitant]
     Active Substance: DIPHENHYDRAMINE HYDROCHLORIDE
     Route: 065
  24. OXYGEN [Concomitant]
     Active Substance: OXYGEN
     Route: 065
  25. MUPIROCIN [Concomitant]
     Active Substance: MUPIROCIN
     Route: 065
  26. ONDANSETRON HYDROCHLORIDE [Concomitant]
     Active Substance: ONDANSETRON HYDROCHLORIDE
     Route: 065
  27. TRAZODONE HCL [Concomitant]
     Active Substance: TRAZODONE HYDROCHLORIDE
     Route: 065
  28. GABAPENTIN [Concomitant]
     Active Substance: GABAPENTIN
     Route: 065
  29. RECLAST [Concomitant]
     Active Substance: ZOLEDRONIC ACID
     Route: 065
  30. VITAMIN D NOS [Concomitant]
     Active Substance: CHOLECALCIFEROL\ERGOCALCIFEROL
     Route: 065
  31. OMEPRAZOLE [Concomitant]
     Active Substance: OMEPRAZOLE
     Route: 065
  32. VITAMIN C [Concomitant]
     Active Substance: ASCORBIC ACID
     Route: 065
  33. XYZAL [Concomitant]
     Active Substance: LEVOCETIRIZINE DIHYDROCHLORIDE
     Route: 065
  34. ASPIRIN [Concomitant]
     Active Substance: ASPIRIN
     Route: 065
  35. TYLENOL [Concomitant]
     Active Substance: ACETAMINOPHEN
     Route: 065

REACTIONS (1)
  - Myocardial infarction [Unknown]
